FAERS Safety Report 8246013-3 (Version None)
Quarter: 2012Q1

REPORT INFORMATION
  Report Type: 
  Country: None (occurrence: None)
  Receive Date: 20120327
  Receipt Date: 20120316
  Transmission Date: 20120608
  Serious: Yes (Other)
  Sender: FDA-Public Use
  Company Number: AUR-APL-2011-06241

PATIENT
  Age: 67 Year
  Sex: Female
  Weight: 93 kg

DRUGS (15)
  1. OMEPRAZOLE [Concomitant]
  2. WARFARIN SODIUM [Suspect]
     Indication: ANTICOAGULANT THERAPY
     Dates: start: 20020101
  3. LEVOTHYROXINE SODIUM [Concomitant]
  4. SOTALOL HYDROCHLORIDE [Concomitant]
  5. FUROSEMIDE [Concomitant]
  6. CEFTRIAXONE [Suspect]
     Indication: URINARY TRACT INFECTION
     Dosage: (1 GM), INTRAMUSCULAR
     Route: 030
  7. POTASSIUM CHLORIDE [Concomitant]
  8. ALBUTEROL [Concomitant]
  9. CITALOPRAM HYDROBROMIDE [Concomitant]
  10. IPRATROPIUM- ALBUTEROL (COMBIVENT) [Concomitant]
  11. METFORMIN HCL [Concomitant]
  12. METOCLOPRAMIDE [Concomitant]
  13. PIOGLITAZONE [Concomitant]
  14. GEMFIBROZIL [Concomitant]
  15. SIMVASTATIN [Concomitant]

REACTIONS (3)
  - URINARY TRACT INFECTION [None]
  - INTERNATIONAL NORMALISED RATIO INCREASED [None]
  - DRUG INTERACTION [None]
